FAERS Safety Report 8405878-2 (Version None)
Quarter: 2012Q2

REPORT INFORMATION
  Report Type: 
  Country: None (occurrence: None)
  Receive Date: 20120323
  Receipt Date: 20110117
  Transmission Date: 20120825
  Serious: Yes (Hospitalization)
  Sender: FDA-Public Use
  Company Number: 163-21880-10091442

PATIENT
  Age: 78 Year
  Sex: Male

DRUGS (11)
  1. AMLODIPINE [Concomitant]
  2. LASIX [Concomitant]
  3. DEXAMETHASONE [Suspect]
     Indication: MULTIPLE MYELOMA
     Dosage: 40 MG, WEEKLY
     Dates: start: 20070524
  4. WARFARIN SODIUM [Concomitant]
  5. NEURONTIN [Concomitant]
  6. DIGOXIN [Concomitant]
  7. REVLIMID [Suspect]
     Indication: MULTIPLE MYELOMA
     Dosage: 15 MG, 1 IN 1 D, PO, 25 MG, 1 IN 1 D, PO, 10 MG, 1 IN 1 D, PO, 10 MG, 1 IN 1 D, PO
     Route: 048
     Dates: start: 20091101, end: 20100809
  8. REVLIMID [Suspect]
     Indication: MULTIPLE MYELOMA
     Dosage: 15 MG, 1 IN 1 D, PO, 25 MG, 1 IN 1 D, PO, 10 MG, 1 IN 1 D, PO, 10 MG, 1 IN 1 D, PO
     Route: 048
     Dates: start: 20080821
  9. REVLIMID [Suspect]
     Indication: MULTIPLE MYELOMA
     Dosage: 15 MG, 1 IN 1 D, PO, 25 MG, 1 IN 1 D, PO, 10 MG, 1 IN 1 D, PO, 10 MG, 1 IN 1 D, PO
     Route: 048
     Dates: start: 20090201
  10. REVLIMID [Suspect]
     Indication: MULTIPLE MYELOMA
     Dosage: 15 MG, 1 IN 1 D, PO, 25 MG, 1 IN 1 D, PO, 10 MG, 1 IN 1 D, PO, 10 MG, 1 IN 1 D, PO
     Route: 048
     Dates: start: 20100927
  11. LEVOTHYROXINE SODIUM [Concomitant]

REACTIONS (3)
  - CLOSTRIDIUM DIFFICILE COLITIS [None]
  - ANAEMIA [None]
  - MALAISE [None]
